FAERS Safety Report 7705800-8 (Version None)
Quarter: 2011Q3

REPORT INFORMATION
  Report Type: 
  Country: None (occurrence: None)
  Receive Date: 20110824
  Receipt Date: 20110824
  Transmission Date: 20111222
  Serious: Yes (Other)
  Sender: FDA-Public Use
  Company Number: None

PATIENT
  Age: 25 Year
  Sex: Female
  Weight: 65.77 kg

DRUGS (1)
  1. CYMBALTA [Suspect]
     Indication: BACK PAIN
     Dosage: ONE PILL
     Route: 048
     Dates: start: 20110812, end: 20110823

REACTIONS (7)
  - DYSPNOEA [None]
  - WEIGHT DECREASED [None]
  - INSOMNIA [None]
  - MUSCLE TIGHTNESS [None]
  - FATIGUE [None]
  - SOMNOLENCE [None]
  - TREMOR [None]
